FAERS Safety Report 21550288 (Version 2)
Quarter: 2023Q1

REPORT INFORMATION
  Report Type: Report from Study
  Country: IT (occurrence: None)
  Receive Date: 20221103
  Receipt Date: 20230207
  Transmission Date: 20230417
  Serious: Yes (Other)
  Sender: FDA-Public Use
  Company Number: 2022A359408

PATIENT

DRUGS (12)
  1. OMEPRAZOLE [Interacting]
     Active Substance: OMEPRAZOLE
     Indication: Product used for unknown indication
     Dosage: UNKNOWN
     Route: 048
  2. METOPROLOL [Interacting]
     Active Substance: METOPROLOL
     Route: 065
  3. LISINOPRIL [Interacting]
     Active Substance: LISINOPRIL
     Route: 065
  4. ONDANSETRON [Interacting]
     Active Substance: ONDANSETRON
     Route: 065
  5. FUROSEMIDE [Interacting]
     Active Substance: FUROSEMIDE
     Indication: Product used for unknown indication
     Dosage: UNKNOWN
     Route: 065
  6. DEXAMETHASONE [Interacting]
     Active Substance: DEXAMETHASONE
     Route: 065
  7. ASPIRIN [Interacting]
     Active Substance: ASPIRIN
     Route: 065
  8. LEVOFLOXACIN [Interacting]
     Active Substance: LEVOFLOXACIN
     Route: 065
  9. FUROSEMIDE [Interacting]
     Active Substance: FUROSEMIDE
     Route: 065
  10. TRAMADOL [Interacting]
     Active Substance: TRAMADOL
     Route: 065
  11. AMIODARONE [Interacting]
     Active Substance: AMIODARONE
     Route: 065
  12. CLOPIDOGREL [Interacting]
     Active Substance: CLOPIDOGREL BISULFATE
     Route: 065

REACTIONS (1)
  - Labelled drug-drug interaction medication error [Unknown]
